FAERS Safety Report 5356367-3 (Version None)
Quarter: 2007Q2

REPORT INFORMATION
  Report Type: 
  Country: None (occurrence: None)
  Receive Date: 20070530
  Receipt Date: 20061213
  Transmission Date: 20071010
  Serious: Yes (Hospitalization, Other)
  Sender: FDA-Public Use
  Company Number: US200609005101

PATIENT
  Age: 49 Year
  Sex: Female
  Weight: 88.4 kg

DRUGS (6)
  1. ZYPREXA [Suspect]
  2. ABILIFY [Concomitant]
  3. SEROQUEL [Concomitant]
  4. CARBAMAZEPINE [Concomitant]
  5. WELLBUTRIN [Concomitant]
  6. CELEXA [Concomitant]

REACTIONS (7)
  - BLOOD CHOLESTEROL ABNORMAL [None]
  - DIABETES MELLITUS [None]
  - DIABETIC KETOACIDOSIS [None]
  - HYPERTENSION [None]
  - HYPOGLYCAEMIA [None]
  - INSULIN RESISTANCE [None]
  - VISION BLURRED [None]
